FAERS Safety Report 23056127 (Version 1)
Quarter: 2023Q4

REPORT INFORMATION
  Report Type: Spontaneous
  Country: US (occurrence: US)
  Receive Date: 20231011
  Receipt Date: 20231011
  Transmission Date: 20240110
  Serious: Yes (Hospitalization, Other)
  Sender: FDA-Public Use
  Company Number: US-GLAXOSMITHKLINE-US2023GSK138396

PATIENT

DRUGS (1)
  1. DOSTARLIMAB [Suspect]
     Active Substance: DOSTARLIMAB
     Indication: Small intestine carcinoma metastatic
     Dosage: UNK

REACTIONS (5)
  - Organising pneumonia [Recovering/Resolving]
  - Acute respiratory failure [Recovering/Resolving]
  - Dyspnoea exertional [Recovering/Resolving]
  - Lung opacity [Recovering/Resolving]
  - Lung consolidation [Recovering/Resolving]
